FAERS Safety Report 23341290 (Version 1)
Quarter: 2023Q4

REPORT INFORMATION
  Report Type: Spontaneous
  Country: JP (occurrence: JP)
  Receive Date: 20231227
  Receipt Date: 20231227
  Transmission Date: 20240110
  Serious: Yes (Hospitalization)
  Sender: FDA-Public Use
  Company Number: JP-DSJP-DSJ-2023-152631

PATIENT
  Age: 80 Year
  Sex: Male

DRUGS (2)
  1. EDOXABAN TOSYLATE [Suspect]
     Active Substance: EDOXABAN TOSYLATE
     Indication: Atrial fibrillation
     Dosage: 30MG/DAY
     Route: 048
  2. ONDEXXYA [Suspect]
     Active Substance: ANDEXANET ALFA
     Indication: Mediastinal haemorrhage
     Dosage: UNK
     Route: 065

REACTIONS (7)
  - Mediastinal haemorrhage [Unknown]
  - Sternal fracture [Unknown]
  - Coronary artery thrombosis [Unknown]
  - Coronary artery thrombosis [Unknown]
  - Cerebral infarction [Unknown]
  - Renal infarct [Unknown]
  - Splenic infarction [Unknown]
